FAERS Safety Report 14678509 (Version 2)
Quarter: 2018Q2

REPORT INFORMATION
  Report Type: Spontaneous
  Country: IN (occurrence: IN)
  Receive Date: 20180326
  Receipt Date: 20180423
  Transmission Date: 20180711
  Serious: Yes (Hospitalization, Other)
  Sender: FDA-Public Use
  Company Number: IN-ALVOGEN-2018-ALVOGEN-095549

PATIENT
  Age: 19 Year
  Sex: Male

DRUGS (2)
  1. ATENOLOL. [Suspect]
     Active Substance: ATENOLOL
     Indication: PRODUCT USED FOR UNKNOWN INDICATION
     Dosage: 30 TABLETS
     Route: 048
  2. AMLODIPINE [Suspect]
     Active Substance: AMLODIPINE BESYLATE
     Indication: PRODUCT USED FOR UNKNOWN INDICATION
     Dosage: 30 TABLETS
     Route: 048

REACTIONS (4)
  - Metabolic acidosis [Recovering/Resolving]
  - Overdose [Unknown]
  - Shock [Recovering/Resolving]
  - Cardiovascular disorder [Unknown]
